FAERS Safety Report 7066451 (Version 10)
Quarter: 2012Q4

REPORT INFORMATION
  Report Type: 
  Country: CA (occurrence: CA)
  Receive Date: 20090729
  Receipt Date: 20121031
  Transmission Date: 20130627
  Serious: Yes (Hospitalization, Other)
  Sender: FDA-Public Use
  Company Number: PHHY2008CA25892

PATIENT
  Sex: Female

DRUGS (6)
  1. SANDOSTATIN LAR [Suspect]
     Indication: ACROMEGALY
     Dates: start: 20061103
  2. SANDOSTATIN LAR [Suspect]
     Dosage: 30 mg, every 4 weeks
     Route: 030
     Dates: start: 200612, end: 201001
  3. CELEXA [Concomitant]
  4. TRANDOLAPRIL [Concomitant]
  5. ROSUVASTATIN [Concomitant]
  6. CANDESARTAN [Concomitant]

REACTIONS (34)
  - Breast haemorrhage [Unknown]
  - Arthralgia [Unknown]
  - Pain in extremity [Unknown]
  - Gait disturbance [Unknown]
  - Vertigo [Not Recovered/Not Resolved]
  - Bone swelling [Unknown]
  - Toothache [Unknown]
  - Apnoea [Unknown]
  - Glucose tolerance impaired [Unknown]
  - Hypertension [Recovered/Resolved]
  - Dry throat [Not Recovered/Not Resolved]
  - Cough [Not Recovered/Not Resolved]
  - Malaise [Recovered/Resolved]
  - Throat tightness [Unknown]
  - Photophobia [Unknown]
  - Somnolence [Unknown]
  - Chest pain [Unknown]
  - Feeling hot [Unknown]
  - Flushing [Unknown]
  - Back pain [Unknown]
  - Pallor [Unknown]
  - Hyperhidrosis [Unknown]
  - Ear pain [Unknown]
  - Dysgeusia [Recovered/Resolved]
  - Injection site discomfort [Recovered/Resolved]
  - Abdominal pain [Unknown]
  - Asthenia [Recovered/Resolved]
  - Dizziness [Recovered/Resolved]
  - Fatigue [Unknown]
  - Injection site pain [Recovered/Resolved]
  - Heart rate decreased [Recovered/Resolved]
  - Headache [Recovered/Resolved]
  - Nausea [Unknown]
  - Drug ineffective [Unknown]
